FAERS Safety Report 11134768 (Version 1)
Quarter: 2015Q2

REPORT INFORMATION
  Report Type: Spontaneous
  Country: US (occurrence: US)
  Receive Date: 20150525
  Receipt Date: 20150525
  Transmission Date: 20150821
  Serious: No
  Sender: FDA-Public Use
  Company Number: US-BIOGENIDEC-2015BI068923

PATIENT
  Age: 64 Year
  Sex: Female

DRUGS (15)
  1. FISH OIL [Concomitant]
     Active Substance: FISH OIL
  2. BIOTIN [Concomitant]
     Active Substance: BIOTIN
  3. DHEA [Concomitant]
     Active Substance: DEHYDROEPIANDROSTERONE-3-SULFATE SODIUM
  4. BENADRYL [Concomitant]
     Active Substance: DIPHENHYDRAMINE HYDROCHLORIDE
  5. CALCIUM CITRATE [Concomitant]
     Active Substance: CALCIUM CITRATE
  6. CIPROFLOXACIN HCL [Concomitant]
     Active Substance: CIPROFLOXACIN HYDROCHLORIDE
  7. AVONEX [Suspect]
     Active Substance: INTERFERON BETA-1A
     Indication: MULTIPLE SCLEROSIS
     Route: 030
  8. ALDARA [Concomitant]
     Active Substance: IMIQUIMOD
  9. ASTAXANTHIN [Concomitant]
  10. CETIRIZINE [Concomitant]
     Active Substance: CETIRIZINE HYDROCHLORIDE
  11. TRIMETON [Concomitant]
     Active Substance: CHLORPHENIRAMINE MALEATE
  12. ACTONEL [Concomitant]
     Active Substance: RISEDRONATE SODIUM
  13. ASPIRIN. [Concomitant]
     Active Substance: ASPIRIN
  14. VITAMIN B12 [Concomitant]
     Active Substance: CYANOCOBALAMIN
  15. VITAMIN D [Concomitant]
     Active Substance: CHOLECALCIFEROL

REACTIONS (2)
  - Increased tendency to bruise [Not Recovered/Not Resolved]
  - Pain in extremity [Not Recovered/Not Resolved]
